FAERS Safety Report 9256220 (Version 1)
Quarter: 2013Q2

REPORT INFORMATION
  Report Type: Spontaneous
  Country: US (occurrence: US)
  Receive Date: 20130425
  Receipt Date: 20130425
  Transmission Date: 20140414
  Serious: No
  Sender: FDA-Public Use
  Company Number: US-AMGEN-USASP2012080927

PATIENT
  Sex: Male

DRUGS (3)
  1. NEULASTA [Suspect]
     Indication: PRODUCT USED FOR UNKNOWN INDICATION
     Dosage: UNK
     Dates: start: 20121207
  2. RITUXAN [Concomitant]
     Dosage: UNK
  3. METHYLPREDNISOLONE [Concomitant]
     Dosage: UNK

REACTIONS (3)
  - Platelet count decreased [Unknown]
  - Neutropenia [Unknown]
  - White blood cell count abnormal [Unknown]
